FAERS Safety Report 11170742 (Version 1)
Quarter: 2015Q2

REPORT INFORMATION
  Report Type: Spontaneous
  Country: US (occurrence: US)
  Receive Date: 20150608
  Receipt Date: 20150608
  Transmission Date: 20150821
  Serious: Yes (Other)
  Sender: FDA-Public Use
  Company Number: US-JNJFOC-20150603937

PATIENT
  Age: 65 Year
  Sex: Female

DRUGS (1)
  1. DOXORUBICIN [Suspect]
     Active Substance: DOXORUBICIN
     Indication: GENITAL NEOPLASM MALIGNANT FEMALE
     Dosage: MEDIAN DOSE WAS 300MG/M2 AND 24 RECEIVED }550 MG/M2
     Route: 042

REACTIONS (3)
  - Cardiac failure congestive [Recovered/Resolved]
  - Product use issue [Unknown]
  - Atrial fibrillation [Recovered/Resolved]
